FAERS Safety Report 9284326 (Version 1)
Quarter: 2013Q2

REPORT INFORMATION
  Report Type: Spontaneous
  Country: BR (occurrence: BR)
  Receive Date: 20130510
  Receipt Date: 20130510
  Transmission Date: 20140414
  Serious: Yes (Hospitalization, Other)
  Sender: FDA-Public Use
  Company Number: BR-ASTRAZENECA-2013SE31312

PATIENT
  Age: 79 Year
  Sex: Female
  Weight: 67 kg

DRUGS (9)
  1. CRESTOR [Suspect]
     Indication: BLOOD CHOLESTEROL INCREASED
     Route: 048
     Dates: start: 2009
  2. GLIFAGE [Concomitant]
     Indication: DIABETES MELLITUS
  3. GLIMEPIRIDE [Concomitant]
     Indication: DIABETES MELLITUS
  4. GALVUS [Concomitant]
     Indication: DIABETES MELLITUS
     Dates: start: 2012
  5. LABIRIN [Concomitant]
     Dates: start: 2008
  6. DIOVAN HCT [Concomitant]
     Indication: HYPERTENSION
     Dates: start: 2002
  7. ATENSINA [Concomitant]
     Indication: HYPERTENSION
     Dates: start: 2008
  8. MANIVASC [Concomitant]
     Indication: HYPERTENSION
     Dates: start: 2008
  9. PURAN T4 [Concomitant]
     Indication: THYROID CANCER
     Dates: start: 1999

REACTIONS (3)
  - Breast enlargement [Recovered/Resolved]
  - Breast cancer female [Not Recovered/Not Resolved]
  - Diabetes mellitus inadequate control [Recovered/Resolved]
